FAERS Safety Report 16131952 (Version 2)
Quarter: 2019Q2

REPORT INFORMATION
  Report Type: Spontaneous
  Country: US (occurrence: US)
  Receive Date: 20190329
  Receipt Date: 20190401
  Transmission Date: 20190711
  Serious: No
  Sender: FDA-Public Use
  Company Number: US-009507513-1903USA012477

PATIENT
  Age: 25 Year
  Sex: Female
  Weight: 170.57 kg

DRUGS (2)
  1. NEXPLANON [Suspect]
     Active Substance: ETONOGESTREL
     Dosage: 1 DOSAGE FORM EVERY 3 YEARS
     Route: 058
     Dates: start: 20160405, end: 20190326
  2. NEXPLANON [Suspect]
     Active Substance: ETONOGESTREL
     Dosage: 1 UNK
     Route: 058
     Dates: start: 20190326

REACTIONS (2)
  - Device breakage [Recovered/Resolved]
  - No adverse event [Unknown]
